FAERS Safety Report 24366390 (Version 1)
Quarter: 2024Q3

REPORT INFORMATION
  Report Type: Spontaneous
  Country: US (occurrence: US)
  Receive Date: 20240926
  Receipt Date: 20240926
  Transmission Date: 20241016
  Serious: Yes (Life-Threatening, Other)
  Sender: PFIZER
  Company Number: US-PFIZER INC-PV202400124710

PATIENT
  Age: 86 Year
  Sex: Male

DRUGS (1)
  1. PEGFILGRASTIM [Suspect]
     Active Substance: PEGFILGRASTIM
     Indication: Chronic myelomonocytic leukaemia
     Dosage: 1 DOSE, ON DAY 6 (THE DAY PRIOR TO ADDMISSION)

REACTIONS (4)
  - Neutrophilia [Unknown]
  - Hyperviscosity syndrome [Unknown]
  - Acute myocardial infarction [Unknown]
  - Off label use [Unknown]
